FAERS Safety Report 8170511-4 (Version None)
Quarter: 2012Q1

REPORT INFORMATION
  Report Type: 
  Country: None (occurrence: None)
  Receive Date: 20120106
  Receipt Date: 20110304
  Transmission Date: 20120608
  Serious: No
  Sender: FDA-Public Use
  Company Number: US-005965

PATIENT
  Age: 15 Year
  Sex: Male
  Weight: 86 kg

DRUGS (2)
  1. MULTIHANCE [Suspect]
     Indication: NEOPLASM
     Dosage: 18ML ONCE INTRAVENOUS (NOT OTHERWISE SPECIFIED)
     Route: 042
     Dates: start: 20110301, end: 20110301
  2. MULTIHANCE [Suspect]
     Indication: NUCLEAR MAGNETIC RESONANCE IMAGING
     Dosage: 18ML ONCE INTRAVENOUS (NOT OTHERWISE SPECIFIED)
     Route: 042
     Dates: start: 20110301, end: 20110301

REACTIONS (9)
  - HYPOTENSION [None]
  - SWELLING FACE [None]
  - PRESYNCOPE [None]
  - SWELLING [None]
  - PARAESTHESIA [None]
  - DYSPNOEA [None]
  - GENERALISED ERYTHEMA [None]
  - VOMITING [None]
  - BURNING SENSATION [None]
